FAERS Safety Report 4309176-8 (Version None)
Quarter: 2004Q1

REPORT INFORMATION
  Report Type: 
  Country: None (occurrence: None)
  Receive Date: 20040301
  Receipt Date: 20040217
  Transmission Date: 20041129
  Serious: Yes (Hospitalization)
  Sender: FDA-Public Use
  Company Number: 2004010520

PATIENT
  Age: 12 Year
  Sex: Male
  Weight: 42.6381 kg

DRUGS (1)
  1. BENADRYL [Suspect]
     Indication: HYPERSENSITIVITY
     Dosage: 4 (12.5 MG) TEASPOONS EVERY 4-6 HOURS, ORAL
     Route: 048
     Dates: start: 20040213

REACTIONS (2)
  - REACTION TO DRUG EXCIPIENT [None]
  - URTICARIA GENERALISED [None]
